FAERS Safety Report 21554959 (Version 2)
Quarter: 2023Q1

REPORT INFORMATION
  Report Type: Report from Study
  Country: JP (occurrence: JP)
  Receive Date: 20221104
  Receipt Date: 20230120
  Transmission Date: 20230418
  Serious: Yes (Other)
  Sender: FDA-Public Use
  Company Number: JP-NAPPMUNDI-GBR-2022-0102678

PATIENT
  Age: 46 Year
  Sex: Female

DRUGS (6)
  1. OXYCONTIN [Suspect]
     Active Substance: OXYCODONE HYDROCHLORIDE
     Indication: Product used for unknown indication
     Dosage: 120 MILLIGRAM, DAILY
     Dates: start: 20210409, end: 20210506
  2. OXYCONTIN [Suspect]
     Active Substance: OXYCODONE HYDROCHLORIDE
     Dosage: 160 MILLIGRAM, DAILY
     Route: 048
     Dates: start: 20210507, end: 20210603
  3. OXYCONTIN [Suspect]
     Active Substance: OXYCODONE HYDROCHLORIDE
     Dosage: 200 MILLIGRAM, DAILY
     Route: 048
     Dates: start: 20210604, end: 20210706
  4. OXYCONTIN [Suspect]
     Active Substance: OXYCODONE HYDROCHLORIDE
     Dosage: 240 MILLIGRAM, DAILY
     Route: 048
     Dates: start: 20210707, end: 20210810
  5. OXYCONTIN [Suspect]
     Active Substance: OXYCODONE HYDROCHLORIDE
     Dosage: 320 MILLIGRAM, DAILY
     Route: 048
     Dates: start: 20210811, end: 20211123
  6. OXYCONTIN [Suspect]
     Active Substance: OXYCODONE HYDROCHLORIDE
     Dosage: 200 MILLIGRAM, DAILY
     Route: 048
     Dates: start: 20211124, end: 20220104

REACTIONS (1)
  - Cholecystitis [Recovering/Resolving]

NARRATIVE: CASE EVENT DATE: 20220119
